FAERS Safety Report 17001523 (Version 4)
Quarter: 2019Q4

REPORT INFORMATION
  Report Type: Spontaneous
  Country: JP (occurrence: JP)
  Receive Date: 20191106
  Receipt Date: 20191217
  Transmission Date: 20200122
  Serious: Yes (Other)
  Sender: FDA-Public Use
  Company Number: JP-PFIZER INC-2019478822

PATIENT
  Age: 47 Year
  Sex: Female

DRUGS (4)
  1. CELECOX [Suspect]
     Active Substance: CELECOXIB
     Indication: TENOSYNOVITIS
     Dosage: 100 MG, 2X/DAY
     Route: 048
     Dates: start: 20190824, end: 20190824
  2. NEXIUM [Concomitant]
     Active Substance: ESOMEPRAZOLE MAGNESIUM
     Dosage: UNK UNK, UNKNOWN FREQ.
     Route: 065
  3. INCREMIN [FERRIC PYROPHOSPHATE] [Concomitant]
     Dosage: UNK UNK, UNKNOWN FREQ.
  4. FEXOFENADINE HYDROCHLORIDE. [Concomitant]
     Active Substance: FEXOFENADINE HYDROCHLORIDE
     Dosage: UNK UNK, UNKNOWN FREQ.

REACTIONS (6)
  - Vomiting [Recovered/Resolved]
  - Diarrhoea [Recovered/Resolved]
  - Pruritus genital [Recovered/Resolved]
  - Hypoaesthesia oral [Recovered/Resolved]
  - Pruritus [Recovered/Resolved]
  - Abdominal pain [Recovered/Resolved]

NARRATIVE: CASE EVENT DATE: 20190824
